FAERS Safety Report 18820085 (Version 1)
Quarter: 2021Q1

REPORT INFORMATION
  Report Type: Spontaneous
  Country: US (occurrence: US)
  Receive Date: 20210202
  Receipt Date: 20210202
  Transmission Date: 20210419
  Serious: Yes (Death, Other)
  Sender: FDA-Public Use
  Company Number: US-SA-2021SA028819

PATIENT
  Age: 69 Year
  Sex: Female

DRUGS (1)
  1. ZANTAC [Suspect]
     Active Substance: RANITIDINE HYDROCHLORIDE
     Dosage: UNK
     Dates: start: 200001, end: 201001

REACTIONS (3)
  - Bladder cancer stage IV [Fatal]
  - Neoplasm malignant [Unknown]
  - Breast cancer [Fatal]

NARRATIVE: CASE EVENT DATE: 20050401
